FAERS Safety Report 5307636-4 (Version None)
Quarter: 2007Q2

REPORT INFORMATION
  Report Type: 
  Country: None (occurrence: None)
  Receive Date: 20070418
  Receipt Date: 20070402
  Transmission Date: 20071010
  Serious: Yes (Death, Hospitalization)
  Sender: FDA-Public Use
  Company Number: 6031745

PATIENT
  Age: 39 Year
  Sex: Male

DRUGS (2)
  1. DICLOFENAC (DICLOFENAC) [Suspect]
     Indication: GOUT
     Dosage: ORAL
     Route: 048
  2. COLCHICINE ( COLCHICINE) [Suspect]
     Indication: GOUT
     Dosage: ORAL
     Route: 048

REACTIONS (14)
  - ABDOMINAL PAIN [None]
  - ACCIDENTAL OVERDOSE [None]
  - CARDIOMYOPATHY [None]
  - DEHYDRATION [None]
  - DIARRHOEA [None]
  - DYSPNOEA [None]
  - EPISTAXIS [None]
  - GENERAL PHYSICAL HEALTH DETERIORATION [None]
  - HYPOTENSION [None]
  - LUNG INJURY [None]
  - RESPIRATORY GAS EXCHANGE DISORDER [None]
  - TACHYPNOEA [None]
  - VASCULAR RESISTANCE SYSTEMIC DECREASED [None]
  - VOMITING [None]
